FAERS Safety Report 5019002-X (Version None)
Quarter: 2006Q2

REPORT INFORMATION
  Report Type: 
  Country: None (occurrence: None)
  Receive Date: 20060606
  Receipt Date: 20060512
  Transmission Date: 20061013
  Serious: Yes (Hospitalization)
  Sender: FDA-Public Use
  Company Number: JP-JPN-A200601543

PATIENT
  Age: 54 Year
  Sex: Male

DRUGS (2)
  1. VALTREX [Suspect]
     Indication: HERPES ZOSTER
     Dosage: 1000MG THREE TIMES PER DAY
     Route: 048
     Dates: start: 20060502, end: 20060503
  2. ALASE [Concomitant]
     Indication: HERPES ZOSTER
     Dosage: .5G PER DAY
     Route: 061
     Dates: start: 20060502

REACTIONS (8)
  - HALLUCINATION [None]
  - HALLUCINATION, VISUAL [None]
  - HEADACHE [None]
  - MOOD ALTERED [None]
  - NAUSEA [None]
  - NERVOUS SYSTEM DISORDER [None]
  - OVERDOSE [None]
  - VOMITING [None]
